FAERS Safety Report 10146156 (Version 1)
Quarter: 2014Q2

REPORT INFORMATION
  Report Type: Spontaneous
  Country: US (occurrence: None)
  Receive Date: 20140430
  Receipt Date: 20140430
  Transmission Date: 20141212
  Serious: Yes (Hospitalization)
  Sender: FDA-Public Use
  Company Number: None

PATIENT
  Age: 60 Year
  Sex: Female
  Weight: 98 kg

DRUGS (18)
  1. ENOXAPARIN 100 MG [Suspect]
     Indication: CEREBROVASCULAR ACCIDENT
     Route: 058
     Dates: start: 20140415, end: 20140428
  2. CITALOPRAM [Concomitant]
  3. FAMOTIDINE [Concomitant]
  4. FOLIC ACID [Concomitant]
  5. HYDROXYCHLOROQUINE [Concomitant]
  6. ALENDRONATE [Concomitant]
  7. GABAPENTIN [Concomitant]
  8. METHOTREXATE [Concomitant]
  9. MIRALAX [Concomitant]
  10. CALCIUM + VITAMIN D [Concomitant]
  11. PREDNISONE [Concomitant]
  12. OXYCODONE [Concomitant]
  13. ALBUTEROL INHALER [Concomitant]
  14. ZOLPIDEM [Concomitant]
  15. NITROFURANTOIN [Concomitant]
  16. VERAPAMIL [Concomitant]
  17. ATORVASTATIN [Concomitant]
  18. LISINOPRIL [Concomitant]

REACTIONS (2)
  - Abdominal wall haematoma [None]
  - Pelvic haematoma [None]
